FAERS Safety Report 7635394-7 (Version None)
Quarter: 2011Q3

REPORT INFORMATION
  Report Type: 
  Country: None (occurrence: None)
  Receive Date: 20110718
  Receipt Date: 20110705
  Transmission Date: 20111222
  Serious: Yes (Hospitalization)
  Sender: FDA-Public Use
  Company Number: PYR-11-04

PATIENT
  Age: 64 Year
  Sex: Female

DRUGS (1)
  1. PYRAZINAMIDE [Suspect]
     Indication: TUBERCULOSIS

REACTIONS (6)
  - MULTI-ORGAN FAILURE [None]
  - SEPTIC SHOCK [None]
  - SEPSIS [None]
  - LIVER TRANSPLANT [None]
  - INTESTINAL OBSTRUCTION [None]
  - ACUTE HEPATIC FAILURE [None]
